FAERS Safety Report 18235839 (Version 16)
Quarter: 2021Q4

REPORT INFORMATION
  Report Type: Report from Study
  Country: FR (occurrence: FR)
  Receive Date: 20200905
  Receipt Date: 20211020
  Transmission Date: 20220304
  Serious: Yes (Death, Life-Threatening, Hospitalization, Other)
  Sender: FDA-Public Use
  Company Number: FR-GLAXOSMITHKLINE-FR2020158924

PATIENT
  Age: 74 Year
  Sex: Male

DRUGS (94)
  1. LANSOPRAZOLE [Suspect]
     Active Substance: LANSOPRAZOLE
     Indication: Gastrointestinal disorder prophylaxis
     Dosage: 3 MG, QD
     Route: 048
     Dates: start: 20200210, end: 20200805
  2. LANSOPRAZOLE [Suspect]
     Active Substance: LANSOPRAZOLE
     Dosage: 30 MILLIGRAM, QD
     Route: 048
     Dates: start: 20200710, end: 20200805
  3. LANSOPRAZOLE [Suspect]
     Active Substance: LANSOPRAZOLE
     Dosage: 3 MG, QD
     Route: 048
     Dates: start: 20200710, end: 20200805
  4. LANSOPRAZOLE [Suspect]
     Active Substance: LANSOPRAZOLE
     Dosage: 78 MG
     Route: 048
  5. FUROSEMIDE [Suspect]
     Active Substance: FUROSEMIDE
     Indication: Product used for unknown indication
     Dosage: UNK
     Route: 065
  6. DIAZEPAM [Suspect]
     Active Substance: DIAZEPAM
     Indication: Product used for unknown indication
     Dosage: 746.354 MG
     Route: 065
  7. SERTRALINE [Suspect]
     Active Substance: SERTRALINE HYDROCHLORIDE
     Indication: Depression
     Dosage: 50 MILLIGRAM, QD
     Route: 048
     Dates: start: 20200726, end: 20200810
  8. SERTRALINE [Suspect]
     Active Substance: SERTRALINE HYDROCHLORIDE
     Indication: Pneumonia
     Dosage: 50 MG, QD
     Route: 048
  9. SERTRALINE [Suspect]
     Active Substance: SERTRALINE HYDROCHLORIDE
     Dosage: 746.354 MG
     Route: 048
  10. SERTRALINE [Suspect]
     Active Substance: SERTRALINE HYDROCHLORIDE
     Dosage: 3 IU, TID
     Route: 042
     Dates: start: 20200708, end: 20200715
  11. HYDROXYZINE [Suspect]
     Active Substance: HYDROXYZINE HYDROCHLORIDE
     Indication: Product used for unknown indication
     Dosage: UNK
     Route: 065
  12. HYDROXYZINE [Suspect]
     Active Substance: HYDROXYZINE HYDROCHLORIDE
     Indication: Product used for unknown indication
     Dosage: UNK
     Route: 065
  13. HYDROXYZINE [Suspect]
     Active Substance: HYDROXYZINE HYDROCHLORIDE
     Dosage: UNK
     Route: 065
  14. POTASSIUM CHLORIDE [Suspect]
     Active Substance: POTASSIUM CHLORIDE
     Indication: Product used for unknown indication
     Dosage: UNK
     Route: 065
  15. POTASSIUM CHLORIDE [Suspect]
     Active Substance: POTASSIUM CHLORIDE
     Route: 065
  16. POTASSIUM CHLORIDE [Suspect]
     Active Substance: POTASSIUM CHLORIDE
     Route: 065
  17. ACETAMINOPHEN [Suspect]
     Active Substance: ACETAMINOPHEN
     Indication: Pyrexia
     Dosage: 1 GRAM
     Route: 042
     Dates: start: 20200719, end: 20200730
  18. ACETAMINOPHEN [Suspect]
     Active Substance: ACETAMINOPHEN
     Dosage: 1 GRAM, PRN
     Route: 042
     Dates: start: 20200719, end: 20200730
  19. RACECADOTRIL [Suspect]
     Active Substance: RACECADOTRIL
     Indication: Product used for unknown indication
     Dosage: 100 MG
     Route: 058
     Dates: start: 20200727, end: 20200804
  20. RACECADOTRIL [Suspect]
     Active Substance: RACECADOTRIL
     Dosage: UNK
     Route: 065
     Dates: start: 20200727, end: 20200804
  21. MIDAZOLAM [Suspect]
     Active Substance: MIDAZOLAM
     Indication: Sedation
     Dosage: 5 MG/HR, CO
     Route: 042
     Dates: start: 20200709, end: 20200713
  22. OXAZEPAM [Suspect]
     Active Substance: OXAZEPAM
     Indication: Anxiolytic therapy
     Dosage: 10 MILLIGRAM, QD
     Route: 048
     Dates: start: 20200802, end: 20200804
  23. OXAZEPAM [Suspect]
     Active Substance: OXAZEPAM
     Dosage: 20 MG, QD
     Route: 048
  24. OXAZEPAM [Suspect]
     Active Substance: OXAZEPAM
     Dosage: 10 MILLIGRAM, QD
     Route: 048
  25. OXAZEPAM [Suspect]
     Active Substance: OXAZEPAM
     Dosage: 90 MILLIGRAM
     Route: 065
  26. PROPOFOL [Suspect]
     Active Substance: PROPOFOL
     Indication: Sedation
     Dosage: 150 MG, QH
     Route: 042
     Dates: start: 20200709, end: 20200720
  27. PROPOFOL [Suspect]
     Active Substance: PROPOFOL
     Dosage: 150 MG/HR, CO
     Route: 042
     Dates: start: 20200709, end: 20200720
  28. ISOSORBIDE DINITRATE [Suspect]
     Active Substance: ISOSORBIDE DINITRATE
     Indication: Product used for unknown indication
     Dosage: UNK
     Route: 065
     Dates: start: 20200714, end: 20200720
  29. MORPHINE HYDROCHLORIDE [Suspect]
     Active Substance: MORPHINE HYDROCHLORIDE
     Indication: Product used for unknown indication
     Dosage: UNK
     Route: 065
  30. MORPHINE HYDROCHLORIDE [Suspect]
     Active Substance: MORPHINE HYDROCHLORIDE
     Dosage: UNK
     Route: 065
  31. SUFENTANIL [Suspect]
     Active Substance: SUFENTANIL
     Indication: Gait disturbance
     Dosage: 33 MICROGRAM
     Route: 042
     Dates: start: 20200709, end: 20200717
  32. SUFENTANIL [Suspect]
     Active Substance: SUFENTANIL
     Indication: Sedation
     Dosage: UNK
     Route: 065
  33. LACTULOSE [Suspect]
     Active Substance: LACTULOSE
     Indication: Constipation
     Dosage: 40 GRAM, QD, 20G EVERY HALF DAY
     Route: 048
     Dates: start: 20200713, end: 20200715
  34. LACTULOSE [Suspect]
     Active Substance: LACTULOSE
     Indication: Product used for unknown indication
     Dosage: 40 MG
     Route: 048
  35. LACTULOSE [Suspect]
     Active Substance: LACTULOSE
     Dosage: 80 MG
     Route: 048
  36. LACTULOSE [Suspect]
     Active Substance: LACTULOSE
     Dosage: 80 GRAM
     Route: 048
  37. DIAMOX SEQUELS [Suspect]
     Active Substance: ACETAZOLAMIDE
     Indication: Product used for unknown indication
     Dosage: UNK
     Route: 065
  38. DIAMOX SEQUELS [Suspect]
     Active Substance: ACETAZOLAMIDE
     Route: 065
  39. THIAMINE HYDROCHLORIDE [Suspect]
     Active Substance: THIAMINE HYDROCHLORIDE
     Indication: Product used for unknown indication
     Dosage: UNK
     Route: 065
  40. THIAMINE HYDROCHLORIDE [Suspect]
     Active Substance: THIAMINE HYDROCHLORIDE
     Dosage: UNK
     Route: 065
  41. NOREPINEPHRINE [Suspect]
     Active Substance: NOREPINEPHRINE
     Indication: Sedation
     Dosage: 8 MG, 3 DAY
     Route: 042
     Dates: start: 20200709, end: 20200712
  42. NOREPINEPHRINE [Suspect]
     Active Substance: NOREPINEPHRINE
     Dosage: 0.8 MG/HR, CO
     Route: 042
     Dates: start: 20200709, end: 20200712
  43. LORAZEPAM [Suspect]
     Active Substance: LORAZEPAM
     Indication: Anxiolytic therapy
     Dosage: 10 MG, QD
     Route: 048
     Dates: start: 20200726, end: 20200727
  44. LORAZEPAM [Suspect]
     Active Substance: LORAZEPAM
     Dosage: 10 MG
     Route: 048
  45. LORAZEPAM [Suspect]
     Active Substance: LORAZEPAM
     Dosage: 2.5 MILLIGRAM
     Route: 048
     Dates: start: 20200726, end: 20200727
  46. LORAZEPAM [Suspect]
     Active Substance: LORAZEPAM
     Dosage: 10 MILLIGRAM,QD
     Route: 048
  47. LOPERAMIDE [Suspect]
     Active Substance: LOPERAMIDE
     Indication: Diarrhoea
     Dosage: 4 MG, QD
     Route: 048
     Dates: start: 20200804, end: 20200804
  48. LOPERAMIDE [Suspect]
     Active Substance: LOPERAMIDE
     Dosage: 4 MG
     Route: 065
  49. METHYLPREDNISOLONE [Suspect]
     Active Substance: METHYLPREDNISOLONE
     Indication: Acute respiratory distress syndrome
     Dosage: 1200 MILLIGRAM, QD
     Route: 042
     Dates: start: 20200708, end: 20200723
  50. METHYLPREDNISOLONE [Suspect]
     Active Substance: METHYLPREDNISOLONE
     Dosage: 1200 MILLIGRAM, QD
     Route: 042
  51. METHYLPREDNISOLONE [Suspect]
     Active Substance: METHYLPREDNISOLONE
     Dosage: 1800 MILLIGRAM,
     Route: 042
  52. METHYLPREDNISOLONE [Suspect]
     Active Substance: METHYLPREDNISOLONE
     Dosage: 120 MILLIGRAM, QD
     Route: 042
     Dates: start: 20200708, end: 20200723
  53. LOVENOX [Suspect]
     Active Substance: ENOXAPARIN SODIUM
     Indication: Phlebitis
     Dosage: 6000 IU, SINGLE
     Route: 058
     Dates: start: 20200708, end: 20200807
  54. LOVENOX [Suspect]
     Active Substance: ENOXAPARIN SODIUM
     Dosage: 6000 INTERNATIONAL UNIT
     Route: 058
  55. SPIRAMYCIN [Suspect]
     Active Substance: SPIRAMYCIN
     Indication: Pneumonia
     Dosage: 9 MEGA-INTERNATIONAL UNIT, QD (3 MEGA-INTERNATIONAL UNIT TID)
     Route: 042
     Dates: start: 20200708, end: 20200715
  56. MORPHINE SULFATE [Suspect]
     Active Substance: MORPHINE SULFATE
     Indication: Product used for unknown indication
     Dosage: UNK
     Route: 065
  57. MORPHINE SULFATE [Suspect]
     Active Substance: MORPHINE SULFATE
     Route: 065
  58. INSULIN LISPRO [Suspect]
     Active Substance: INSULIN LISPRO
     Indication: Product used for unknown indication
     Dosage: 1 IU
     Route: 042
     Dates: start: 20200709, end: 20200730
  59. LOPERAMIDE HYDROCHLORIDE [Suspect]
     Active Substance: LOPERAMIDE HYDROCHLORIDE
     Indication: Diarrhoea
     Dosage: 4 MG
  60. LOPERAMIDE HYDROCHLORIDE [Suspect]
     Active Substance: LOPERAMIDE HYDROCHLORIDE
     Dosage: 4 MILLIGRAM
     Route: 048
     Dates: start: 20200804, end: 20200804
  61. POLYETHYLENE GLYCOL 4000 [Suspect]
     Active Substance: POLYETHYLENE GLYCOL 4000
     Dosage: 2 SACHET, BID
     Route: 048
     Dates: start: 20200713, end: 20200715
  62. AMIODARONE HYDROCHLORIDE [Suspect]
     Active Substance: AMIODARONE HYDROCHLORIDE
     Indication: Atrial fibrillation
     Dosage: 907.2 MG, QD
     Route: 042
     Dates: start: 20200725, end: 20200727
  63. AMIODARONE HYDROCHLORIDE [Suspect]
     Active Substance: AMIODARONE HYDROCHLORIDE
     Dosage: 1814.4 MG CUMULATIVE DOSE
     Route: 065
     Dates: start: 20200725, end: 20200727
  64. CLONIDINE HYDROCHLORIDE [Suspect]
     Active Substance: CLONIDINE HYDROCHLORIDE
     Indication: Hypertension
     Dosage: UNK
     Route: 065
     Dates: start: 20200717, end: 20200717
  65. REMIFENTANIL [Suspect]
     Active Substance: REMIFENTANIL
     Indication: Sedation
     Dosage: 0.1 MCG/KG/MIN, CO
     Route: 042
     Dates: start: 20200720, end: 20200730
  66. FENOTEROL\IPRATROPIUM [Suspect]
     Active Substance: FENOTEROL\IPRATROPIUM
     Indication: Inhalation therapy
     Dosage: 1.5 MILLIGRAM, QD
     Route: 055
     Dates: start: 20200730, end: 20200803
  67. FENOTEROL\IPRATROPIUM [Suspect]
     Active Substance: FENOTEROL\IPRATROPIUM
     Dosage: 6 MG
     Route: 055
  68. FENOTEROL\IPRATROPIUM [Suspect]
     Active Substance: FENOTEROL\IPRATROPIUM
     Dosage: 0.5 MG, TID
     Route: 055
     Dates: start: 20200730, end: 20200803
  69. URAPIDIL [Suspect]
     Active Substance: URAPIDIL
     Indication: Hypertension
     Dosage: 5 MILLIGRAM, QD
     Route: 042
     Dates: start: 20200709, end: 20200709
  70. NIMBEX [Suspect]
     Active Substance: CISATRACURIUM BESYLATE
     Indication: Endotracheal intubation
     Dosage: 20 MILLIGRAM
     Route: 042
     Dates: start: 20200715, end: 20200715
  71. NIMBEX [Suspect]
     Active Substance: CISATRACURIUM BESYLATE
     Indication: Neuromuscular blocking therapy
     Dosage: UNK
     Route: 065
  72. CALCIUM PHOSPHATE, DIBASIC, ANHYDROUS\MAGNESIUM GLYCEROPHOSPHATE\PHOSP [Suspect]
     Active Substance: CALCIUM PHOSPHATE, DIBASIC, ANHYDROUS\MAGNESIUM GLYCEROPHOSPHATE\PHOSPHORIC ACID\SODIUM PHOSPHATE, D
     Indication: Pneumonia
     Dosage: 6 GRAM, QD
     Route: 042
     Dates: start: 20200708, end: 20200715
  73. CALCIUM PHOSPHATE, DIBASIC, ANHYDROUS\MAGNESIUM GLYCEROPHOSPHATE\PHOSP [Suspect]
     Active Substance: CALCIUM PHOSPHATE, DIBASIC, ANHYDROUS\MAGNESIUM GLYCEROPHOSPHATE\PHOSPHORIC ACID\SODIUM PHOSPHATE, D
     Indication: Pneumonia
  74. CLONIDINE [Suspect]
     Active Substance: CLONIDINE
     Indication: Hypertension
     Dosage: UNK
     Route: 065
     Dates: start: 20200717, end: 20200717
  75. CEFOTAXIME [Suspect]
     Active Substance: CEFOTAXIME SODIUM
     Indication: Pneumonia
     Dosage: 6 GRAM, 7 DAY
     Route: 042
     Dates: start: 20200708, end: 20200715
  76. CEFOTAXIME [Suspect]
     Active Substance: CEFOTAXIME SODIUM
     Dosage: 2 G, TID
     Route: 042
     Dates: start: 20200708, end: 20200715
  77. CEFOTAXIME [Suspect]
     Active Substance: CEFOTAXIME SODIUM
     Dosage: 42 G
     Route: 042
  78. PIPERACILLIN SODIUM\TAZOBACTAM SODIUM [Suspect]
     Active Substance: PIPERACILLIN SODIUM\TAZOBACTAM SODIUM
     Indication: Tracheobronchitis
     Dosage: 12 GRAM, QD (4G, TID)
     Route: 042
     Dates: start: 20200723, end: 20200730
  79. PIPERACILLIN SODIUM\TAZOBACTAM SODIUM [Suspect]
     Active Substance: PIPERACILLIN SODIUM\TAZOBACTAM SODIUM
     Dosage: 84 G
     Route: 042
  80. ISUPREL [Suspect]
     Active Substance: ISOPROTERENOL HYDROCHLORIDE
     Indication: Product used for unknown indication
     Dosage: UNK
     Route: 065
     Dates: start: 20200711, end: 20200713
  81. CALCIUM GLUCONATE [Suspect]
     Active Substance: CALCIUM GLUCONATE
     Indication: Product used for unknown indication
     Dosage: UNK
     Route: 065
  82. REMIFENTANIL HYDROCHLORIDE [Suspect]
     Active Substance: REMIFENTANIL HYDROCHLORIDE
     Indication: Sedation
     Dosage: UNK
     Route: 042
     Dates: start: 20200720, end: 20200730
  83. OTILIMAB [Suspect]
     Active Substance: OTILIMAB
     Indication: COVID-19
     Dosage: 1 DF
     Route: 058
     Dates: start: 20200708
  84. OTILIMAB [Suspect]
     Active Substance: OTILIMAB
     Indication: Coronavirus infection
  85. POTASSIUM GLUCONATE [Suspect]
     Active Substance: POTASSIUM GLUCONATE
     Indication: Product used for unknown indication
     Dosage: UNK
     Route: 065
  86. CALCIUM PHOSPHATE, DIBASIC, ANHYDROUS\MAGNESIUM GLYCEROPHOSPHATE\PHOSP [Suspect]
     Active Substance: CALCIUM PHOSPHATE, DIBASIC, ANHYDROUS\MAGNESIUM GLYCEROPHOSPHATE\PHOSPHORIC ACID\SODIUM PHOSPHATE, D
     Route: 065
  87. ATORVASTATIN [Concomitant]
     Active Substance: ATORVASTATIN
     Indication: Product used for unknown indication
     Dosage: UNK
     Route: 065
  88. ATORVASTATIN [Concomitant]
     Active Substance: ATORVASTATIN
     Route: 065
  89. KARDEGIC [Concomitant]
     Active Substance: ASPIRIN DL-LYSINE
     Indication: Product used for unknown indication
     Dosage: UNK
     Route: 065
  90. KARDEGIC [Concomitant]
     Active Substance: ASPIRIN DL-LYSINE
     Dosage: UNK
     Route: 065
  91. HYDROXYUREA [Concomitant]
     Active Substance: HYDROXYUREA
     Indication: Product used for unknown indication
     Dosage: UNK
     Route: 065
  92. HYDROXYUREA [Concomitant]
     Active Substance: HYDROXYUREA
     Route: 065
  93. POTASSIUM GLUCONATE [Concomitant]
     Active Substance: POTASSIUM GLUCONATE
     Indication: Product used for unknown indication
     Dosage: UNK
     Route: 065
  94. POTASSIUM GLUCONATE [Concomitant]
     Active Substance: POTASSIUM GLUCONATE
     Route: 065

REACTIONS (1)
  - Toxic epidermal necrolysis [Fatal]

NARRATIVE: CASE EVENT DATE: 20200809
